FAERS Safety Report 13762738 (Version 3)
Quarter: 2017Q4

REPORT INFORMATION
  Report Type: Spontaneous
  Country: IT (occurrence: IT)
  Receive Date: 20170718
  Receipt Date: 20171024
  Transmission Date: 20180320
  Serious: Yes (Hospitalization)
  Sender: FDA-Public Use
  Company Number: IT-B.I. PHARMACEUTICALS,INC./RIDGEFIELD-2015-BI-11045IT

PATIENT
  Age: 60 Year
  Sex: Male
  Weight: 95 kg

DRUGS (10)
  1. MADOPAR [Concomitant]
     Active Substance: BENSERAZIDE HYDROCHLORIDE\LEVODOPA
     Dosage: FORM STRENGTH: 200 + 50 MG
     Route: 065
  2. ENTACT [Concomitant]
     Active Substance: ESCITALOPRAM OXALATE
     Route: 065
  3. MIRAPEXIN [Suspect]
     Active Substance: PRAMIPEXOLE
     Indication: PARKINSON^S DISEASE
     Route: 065
     Dates: start: 2010, end: 2014
  4. MIRAPEXIN [Suspect]
     Active Substance: PRAMIPEXOLE
     Route: 065
     Dates: start: 20100728
  5. MIRAPEXIN [Suspect]
     Active Substance: PRAMIPEXOLE
     Route: 065
  6. MIRAPEXIN [Suspect]
     Active Substance: PRAMIPEXOLE
     Route: 065
  7. MADOPAR [Concomitant]
     Active Substance: BENSERAZIDE HYDROCHLORIDE\LEVODOPA
     Indication: PRODUCT USED FOR UNKNOWN INDICATION
     Dosage: FORM STRENGTH: 100/25MG
     Route: 065
  8. MIRAPEXIN [Suspect]
     Active Substance: PRAMIPEXOLE
     Route: 065
  9. MIRAPEXIN [Suspect]
     Active Substance: PRAMIPEXOLE
     Route: 065
  10. ENTACT [Concomitant]
     Active Substance: ESCITALOPRAM OXALATE
     Indication: PRODUCT USED FOR UNKNOWN INDICATION
     Route: 065

REACTIONS (3)
  - Impulse-control disorder [Unknown]
  - Syncope [Unknown]
  - Anxiety [Unknown]

NARRATIVE: CASE EVENT DATE: 20140913
